FAERS Safety Report 5570874-X (Version None)
Quarter: 2007Q4

REPORT INFORMATION
  Report Type: 
  Country: None (occurrence: None)
  Receive Date: 20071221
  Receipt Date: 20071214
  Transmission Date: 20080405
  Serious: Yes (Hospitalization)
  Sender: FDA-Public Use
  Company Number: GB-AVENTIS-200721485GDDC

PATIENT
  Age: 13 Year
  Sex: Male

DRUGS (2)
  1. DESMOPRESSIN [Suspect]
     Indication: DIABETES INSIPIDUS
     Route: 042
  2. DICLOFENAC [Suspect]
     Indication: POSTOPERATIVE ANALGESIA
     Route: 048

REACTIONS (1)
  - RENAL IMPAIRMENT [None]
